FAERS Safety Report 7595184-0 (Version None)
Quarter: 2011Q2

REPORT INFORMATION
  Report Type: 
  Country: None (occurrence: None)
  Receive Date: 20110620
  Receipt Date: 20110504
  Transmission Date: 20111010
  Serious: Yes (Hospitalization)
  Sender: FDA-Public Use
  Company Number: UTC-006872

PATIENT
  Age: 64 Year
  Sex: Male

DRUGS (5)
  1. TRACLEER [Concomitant]
  2. DIURETICS (DIURETICS) [Concomitant]
  3. TYVASO [Suspect]
     Indication: PULMONARY ARTERIAL HYPERTENSION
     Dosage: 18-54 MICROGRAMS (4 IN 1 D) INHALATION
     Route: 055
     Dates: start: 20100928
  4. COUMADIN [Concomitant]
  5. ADCIRCA [Concomitant]

REACTIONS (1)
  - HAEMORRHAGE [None]
